FAERS Safety Report 14820182 (Version 2)
Quarter: 2018Q3

REPORT INFORMATION
  Report Type: Spontaneous
  Country: DE (occurrence: DE)
  Receive Date: 20180427
  Receipt Date: 20180924
  Transmission Date: 20181010
  Serious: Yes (Hospitalization, Other)
  Sender: FDA-Public Use
  Company Number: PHHY2017DE202550

PATIENT
  Sex: Male
  Weight: 60 kg

DRUGS (26)
  1. NOVAMINSULFON [Suspect]
     Active Substance: METAMIZOLE
     Dosage: 120 GTT, QD
     Route: 065
     Dates: start: 20170810
  2. NOVAMINSULFON [Suspect]
     Active Substance: METAMIZOLE
     Route: 065
     Dates: start: 20170729, end: 20170810
  3. PANTOPRAZOL [Suspect]
     Active Substance: PANTOPRAZOLE SODIUM
     Dosage: 40 MG, QD
     Route: 065
     Dates: start: 20170810
  4. HUMIRA [Suspect]
     Active Substance: ADALIMUMAB
     Indication: PSORIASIS
     Dosage: 40 MG, QW
     Route: 058
     Dates: end: 20170722
  5. HUMIRA [Suspect]
     Active Substance: ADALIMUMAB
     Dosage: 40 MG, QW
     Route: 058
     Dates: end: 201708
  6. MORPHINE [Suspect]
     Active Substance: MORPHINE
     Dosage: 4 ML, IN ADDITION, IF REQUIRED
     Route: 042
     Dates: start: 20170729
  7. IBUPROFEN. [Concomitant]
     Active Substance: IBUPROFEN
     Dosage: AS NEEDED
  8. HUMIRA [Suspect]
     Active Substance: ADALIMUMAB
     Indication: HIDRADENITIS
     Dosage: 40 MG, QW
     Route: 058
     Dates: start: 20160412
  9. MORPHINE [Suspect]
     Active Substance: MORPHINE
     Dosage: 4 ML, IN ADDITION, IF REQUIRED
     Route: 042
     Dates: start: 20170810
  10. PANTOPRAZOL [Suspect]
     Active Substance: PANTOPRAZOLE SODIUM
     Indication: PRODUCT USED FOR UNKNOWN INDICATION
     Dosage: 40 MG, QD
     Route: 065
     Dates: start: 20170729
  11. HUMIRA [Suspect]
     Active Substance: ADALIMUMAB
     Dosage: UNK
     Route: 065
  12. PANTOPRAZOL [Suspect]
     Active Substance: PANTOPRAZOLE SODIUM
     Route: 065
     Dates: start: 20170729, end: 20170810
  13. TRAMAL LONG [Suspect]
     Active Substance: TRAMADOL
     Route: 065
     Dates: start: 20170729, end: 20170810
  14. TRAMAL [Suspect]
     Active Substance: TRAMADOL
     Dosage: 30 DF, TID (PRN)
     Route: 065
     Dates: start: 20170810
  15. ZOLPIDEM [Suspect]
     Active Substance: ZOLPIDEM\ZOLPIDEM TARTRATE
     Indication: PRODUCT USED FOR UNKNOWN INDICATION
     Dosage: 5 MG, UNK
     Route: 065
     Dates: start: 20170729
  16. DEKRISTOL [Concomitant]
     Active Substance: CHOLECALCIFEROL
     Indication: PRODUCT USED FOR UNKNOWN INDICATION
     Dosage: UNK
     Route: 065
  17. NOVAMINSULFON [Suspect]
     Active Substance: METAMIZOLE
     Indication: PRODUCT USED FOR UNKNOWN INDICATION
     Dosage: 120 GTT, QD
     Route: 065
     Dates: start: 20170729
  18. TRAMAL LONG [Suspect]
     Active Substance: TRAMADOL
     Indication: PRODUCT USED FOR UNKNOWN INDICATION
     Dosage: 200 MG, QD
     Route: 065
     Dates: start: 20170729
  19. DEKRISTOL [Concomitant]
     Active Substance: CHOLECALCIFEROL
  20. TRAMAL LONG [Suspect]
     Active Substance: TRAMADOL
     Dosage: 200 MG, QD
     Route: 065
     Dates: start: 20170810
  21. MORPHINE [Suspect]
     Active Substance: MORPHINE
     Indication: PRODUCT USED FOR UNKNOWN INDICATION
     Dosage: 6 ML, QH
     Route: 042
     Dates: start: 20170729
  22. MORPHINE [Suspect]
     Active Substance: MORPHINE
     Dosage: 6 ML, QH
     Route: 042
     Dates: start: 20170810
  23. TRAMAL [Suspect]
     Active Substance: TRAMADOL
     Indication: PRODUCT USED FOR UNKNOWN INDICATION
     Dosage: 30 DF, TID (PRN)
     Route: 065
     Dates: start: 20170729
  24. TRAMAL [Suspect]
     Active Substance: TRAMADOL
     Dosage: 3 TIMES PER DAY AS REQUIRED
     Route: 065
     Dates: start: 20170729, end: 20170810
  25. ZOLPIDEM [Suspect]
     Active Substance: ZOLPIDEM\ZOLPIDEM TARTRATE
     Dosage: 5 MG, UNK
     Route: 065
     Dates: start: 20170810
  26. IBUPROFEN. [Concomitant]
     Active Substance: IBUPROFEN
     Indication: PRODUCT USED FOR UNKNOWN INDICATION
     Dosage: UNK UNK, PRN
     Route: 065

REACTIONS (13)
  - Abscess [Recovering/Resolving]
  - Pneumothorax spontaneous [Recovered/Resolved]
  - Pneumothorax spontaneous [Recovered/Resolved]
  - Drug specific antibody present [Unknown]
  - Psoriasis [Not Recovered/Not Resolved]
  - Psoriasis [Recovered/Resolved]
  - Rash [Recovered/Resolved]
  - Scab [Recovered/Resolved]
  - Rash pruritic [Recovered/Resolved]
  - Dandruff [Recovered/Resolved]
  - Pneumothorax [Recovered/Resolved]
  - Rash erythematous [Recovered/Resolved]
  - Hidradenitis [Not Recovered/Not Resolved]

NARRATIVE: CASE EVENT DATE: 201605
